FAERS Safety Report 21240989 (Version 2)
Quarter: 2022Q3

REPORT INFORMATION
  Report Type: Spontaneous
  Country: FR (occurrence: FR)
  Receive Date: 20220823
  Receipt Date: 20220914
  Transmission Date: 20221026
  Serious: Yes (Hospitalization)
  Sender: FDA-Public Use
  Company Number: FR-AFSSAPS-AN20221821

PATIENT
  Age: 73 Year
  Sex: Male
  Weight: 70 kg

DRUGS (5)
  1. CLOZAPINE [Suspect]
     Active Substance: CLOZAPINE
     Indication: Medication error
     Route: 048
     Dates: start: 20220420, end: 20220420
  2. PRAZEPAM [Suspect]
     Active Substance: PRAZEPAM
     Indication: Medication error
     Route: 048
     Dates: start: 20220420, end: 20220420
  3. LEVOTHYROXINE [Suspect]
     Active Substance: LEVOTHYROXINE
     Indication: Medication error
     Route: 048
     Dates: start: 20220420, end: 20220420
  4. LOXAPINE [Suspect]
     Active Substance: LOXAPINE
     Indication: Medication error
     Route: 048
     Dates: start: 20220420, end: 20220420
  5. OXAZEPAM [Suspect]
     Active Substance: OXAZEPAM
     Indication: Product used for unknown indication
     Dosage: 5 MILLIGRAM
     Route: 048

REACTIONS (4)
  - Sedation [Recovered/Resolved]
  - Tachycardia [Recovered/Resolved]
  - Pneumonia aspiration [Recovered/Resolved]
  - Wrong patient [Recovered/Resolved]

NARRATIVE: CASE EVENT DATE: 20220420
